FAERS Safety Report 17606832 (Version 2)
Quarter: 2020Q2

REPORT INFORMATION
  Report Type: Spontaneous
  Country: US (occurrence: US)
  Receive Date: 20200331
  Receipt Date: 20200508
  Transmission Date: 20200713
  Serious: Yes (Other)
  Sender: FDA-Public Use
  Company Number: US-NOVOPROD-720516

PATIENT
  Sex: Female

DRUGS (1)
  1. NOVOLIN N [Suspect]
     Active Substance: INSULIN HUMAN
     Indication: TYPE 2 DIABETES MELLITUS
     Dosage: 54 IU, QD (28 UNITS IN THE MORNING 26 UNITS AT NIGHT)
     Route: 058
     Dates: start: 201907

REACTIONS (26)
  - Hand fracture [Unknown]
  - Hypoglycaemic unconsciousness [Recovered/Resolved]
  - Neck pain [Unknown]
  - Blood pressure increased [Unknown]
  - Dyspnoea [Unknown]
  - Swelling [Unknown]
  - Blood glucose increased [Unknown]
  - Headache [Unknown]
  - Weight increased [Unknown]
  - Nervousness [Unknown]
  - Anaemia [Unknown]
  - Dyspnoea [Recovered/Resolved]
  - Eating disorder [Unknown]
  - Urinary tract infection [Unknown]
  - Memory impairment [Unknown]
  - Dysarthria [Unknown]
  - Blood potassium decreased [Unknown]
  - Hyperhidrosis [Unknown]
  - Rash [Unknown]
  - Hepatic steatosis [Unknown]
  - Confusional state [Unknown]
  - Neuralgia [Unknown]
  - Bladder disorder [Unknown]
  - Choking [Unknown]
  - Dizziness [Unknown]
  - Peripheral swelling [Unknown]

NARRATIVE: CASE EVENT DATE: 201911
